FAERS Safety Report 21490540 (Version 1)
Quarter: 2022Q4

REPORT INFORMATION
  Report Type: Spontaneous
  Country: IN (occurrence: IN)
  Receive Date: 20221021
  Receipt Date: 20221021
  Transmission Date: 20230113
  Serious: Yes (Hospitalization)
  Sender: FDA-Public Use
  Company Number: IN-STRIDES ARCOLAB LIMITED-2022SP013778

PATIENT
  Age: 10 Year
  Sex: Male

DRUGS (9)
  1. HALOPERIDOL [Suspect]
     Active Substance: HALOPERIDOL
     Indication: Encephalitis brain stem
     Dosage: UNK
     Route: 048
  2. VALPROATE SODIUM [Concomitant]
     Active Substance: VALPROATE SODIUM
     Indication: Seizure
     Dosage: 30 MILLIGRAM/KILOGRAM PER DAY (3 DIVIDED DOSE PER DAY)
     Route: 065
  3. VALPROATE SODIUM [Concomitant]
     Active Substance: VALPROATE SODIUM
     Dosage: 60 MILLIGRAM/KILOGRAM PER DAY
     Route: 065
  4. PHENYTOIN [Concomitant]
     Active Substance: PHENYTOIN
     Indication: Seizure
     Dosage: 5 MILLIGRAM/KILOGRAM PER DAY (2 DIVIDED DOSE PER DAY)
     Route: 042
  5. LEVETIRACETAM [Concomitant]
     Active Substance: LEVETIRACETAM
     Indication: Seizure
     Dosage: 30 MILLIGRAM/KILOGRAM PER DAY (3 DIVIDED DOSES PER DAY)
     Route: 042
  6. MIDAZOLAM [Concomitant]
     Active Substance: MIDAZOLAM
     Indication: Seizure
     Dosage: 1 MICROGRAM/KILOGRAM
     Route: 065
  7. METHYLPREDNISOLONE [Concomitant]
     Active Substance: METHYLPREDNISOLONE
     Indication: Encephalitis brain stem
     Dosage: PULSE THERAPY FOR 5 DAYS, LATER DOSE WAS TAPERED
     Route: 065
  8. ENOXAPARIN SODIUM [Concomitant]
     Active Substance: ENOXAPARIN SODIUM
     Indication: Prophylaxis
     Dosage: UNK
     Route: 058
  9. DOBUTAMINE [Concomitant]
     Active Substance: DOBUTAMINE HYDROCHLORIDE
     Indication: Multisystem inflammatory syndrome in children
     Dosage: 0.1 MICROGRAM/KILOGRAM OVER 48 H
     Route: 065

REACTIONS (4)
  - Aggression [Recovered/Resolved]
  - Dyskinesia [Recovered/Resolved]
  - Condition aggravated [Recovered/Resolved]
  - Off label use [Unknown]
